FAERS Safety Report 18550022 (Version 2)
Quarter: 2020Q4

REPORT INFORMATION
  Report Type: Report from Study
  Country: JP (occurrence: JP)
  Receive Date: 20201126
  Receipt Date: 20201230
  Transmission Date: 20210114
  Serious: No
  Sender: FDA-Public Use
  Company Number: NVSJ2020JP010094

PATIENT
  Age: 71 Year
  Sex: Female

DRUGS (11)
  1. REVOLADE TAB [Suspect]
     Active Substance: ELTROMBOPAG
     Dosage: 25 MG
     Route: 048
     Dates: start: 20200110, end: 20200925
  2. NEORAL [Concomitant]
     Active Substance: CYCLOSPORINE
     Dosage: 200 MG
     Route: 048
     Dates: start: 20181011, end: 20181114
  3. NEORAL [Concomitant]
     Active Substance: CYCLOSPORINE
     Dosage: 250 MG
     Route: 048
     Dates: start: 20181115, end: 20190620
  4. NEORAL [Concomitant]
     Active Substance: CYCLOSPORINE
     Dosage: 200 MG
     Route: 048
     Dates: start: 20190621
  5. REVOLADE TAB [Suspect]
     Active Substance: ELTROMBOPAG
     Dosage: 37.5 MG
     Route: 048
     Dates: start: 20191129, end: 20200109
  6. PRIMOBOLAN [Concomitant]
     Active Substance: METHENOLONE
     Dosage: 20 MG
     Route: 048
     Dates: start: 20190621, end: 20190921
  7. REVOLADE TAB [Suspect]
     Active Substance: ELTROMBOPAG
     Indication: APLASTIC ANAEMIA
     Dosage: 25 MG
     Route: 048
     Dates: start: 20190830, end: 20191128
  8. AMLODIPINE [Concomitant]
     Active Substance: AMLODIPINE BESYLATE
     Indication: HYPERTENSION
     Dosage: 2.5 MG
     Route: 048
     Dates: start: 201601
  9. NEORAL [Concomitant]
     Active Substance: CYCLOSPORINE
     Indication: APLASTIC ANAEMIA
     Dosage: 100 MG
     Route: 048
     Dates: start: 20181004, end: 20181010
  10. PRIMOBOLAN [Concomitant]
     Active Substance: METHENOLONE
     Indication: APLASTIC ANAEMIA
     Dosage: 10 MG
     Route: 048
     Dates: start: 20180911, end: 20180919
  11. PRIMOBOLAN [Concomitant]
     Active Substance: METHENOLONE
     Dosage: 20 MG
     Route: 048
     Dates: start: 20180920, end: 20181003

REACTIONS (1)
  - Dizziness [Recovering/Resolving]

NARRATIVE: CASE EVENT DATE: 20200105
